FAERS Safety Report 9003258 (Version 2)
Quarter: 2013Q1

REPORT INFORMATION
  Report Type: Spontaneous
  Country: US (occurrence: US)
  Receive Date: 20130108
  Receipt Date: 20130122
  Transmission Date: 20140127
  Serious: Yes (Death)
  Sender: FDA-Public Use
  Company Number: US-PFIZER INC-2013007285

PATIENT
  Age: 48 Year
  Sex: Female

DRUGS (10)
  1. PROPANOLOL HCL [Suspect]
     Dosage: UNK
     Route: 048
  2. OXYCODONE HYDROCHLORIDE [Suspect]
     Dosage: UNK
     Route: 048
  3. ONDANSETRON [Suspect]
     Dosage: UNK
     Route: 048
  4. HYDROXYZINE PAMOATE [Suspect]
     Dosage: UNK
     Route: 048
  5. TRAZODONE [Suspect]
     Dosage: UNK
     Route: 048
  6. CLONAZEPAM [Suspect]
     Dosage: UNK
     Route: 048
  7. RISPERIDONE [Suspect]
     Dosage: UNK
     Route: 048
  8. TEMAZEPAM [Suspect]
     Dosage: UNK
     Route: 048
  9. BENZTROPINE MESYLATE [Suspect]
     Dosage: UNK
     Route: 048
  10. ESCITALOPRAM [Suspect]
     Dosage: UNK
     Route: 048

REACTIONS (3)
  - Completed suicide [Fatal]
  - Cardiac arrest [Fatal]
  - Respiratory arrest [Fatal]
